FAERS Safety Report 20807234 (Version 1)
Quarter: 2022Q2

REPORT INFORMATION
  Report Type: Spontaneous
  Country: GB (occurrence: GB)
  Receive Date: 20220510
  Receipt Date: 20220510
  Transmission Date: 20220721
  Serious: Yes (Other)
  Sender: FDA-Public Use
  Company Number: GB-BIOGEN-2022BI01108748

PATIENT
  Age: 56 Year
  Sex: Female

DRUGS (2)
  1. PLEGRIDY [Suspect]
     Active Substance: PEGINTERFERON BETA-1A
     Indication: Multiple sclerosis
     Route: 065
     Dates: start: 20220225, end: 20220421
  2. PLEGRIDY [Suspect]
     Active Substance: PEGINTERFERON BETA-1A
     Dosage: 2ND DOSE
     Route: 058

REACTIONS (11)
  - Cardiac flutter [Unknown]
  - Feeling cold [Unknown]
  - Abdominal pain lower [Unknown]
  - Eye pain [Unknown]
  - Cold sweat [Recovered/Resolved]
  - Dizziness [Recovered/Resolved]
  - Back pain [Unknown]
  - Headache [Unknown]
  - Chills [Unknown]
  - Arthralgia [Unknown]
  - Nausea [Unknown]

NARRATIVE: CASE EVENT DATE: 20220225
